FAERS Safety Report 4702862-7 (Version None)
Quarter: 2005Q2

REPORT INFORMATION
  Report Type: 
  Country: None (occurrence: None)
  Receive Date: 20050629
  Receipt Date: 20050623
  Transmission Date: 20051028
  Serious: Yes (Death)
  Sender: FDA-Public Use
  Company Number: US-ABBOTT-05P-163-0303909-00

PATIENT
  Sex: Male

DRUGS (6)
  1. DEPAKOTE [Suspect]
     Indication: BIPOLAR DISORDER
     Route: 048
     Dates: start: 20011201
  2. CITALOPRAM HYDROBROMIDE [Concomitant]
     Indication: DEPRESSION
     Route: 048
     Dates: start: 20010101
  3. FEMVIR [Concomitant]
     Indication: HIV INFECTION
     Route: 048
  4. RITONAVIR [Concomitant]
     Indication: HIV INFECTION
     Route: 048
  5. LEVOTHYROXINE SODIUM [Concomitant]
     Indication: HYPOTHYROIDISM
     Route: 048
  6. VIREAD [Concomitant]
     Indication: HIV INFECTION
     Route: 048

REACTIONS (1)
  - HIV INFECTION [None]
